FAERS Safety Report 4490732-1 (Version None)
Quarter: 2004Q4

REPORT INFORMATION
  Report Type: 
  Country: None (occurrence: None)
  Receive Date: 20041029
  Receipt Date: 20041026
  Transmission Date: 20050328
  Serious: Yes (Other)
  Sender: FDA-Public Use
  Company Number: 003057

PATIENT
  Age: 66 Year
  Sex: Female

DRUGS (4)
  1. MEDROXYPROGESTERONE ACETATE [Suspect]
     Dosage: ORAL
     Route: 048
     Dates: start: 19860101, end: 20001001
  2. PROVERA [Suspect]
     Dosage: ORAL
     Route: 048
     Dates: start: 19860101, end: 20001001
  3. PREMARIN [Suspect]
     Dosage: ORAL
     Route: 048
     Dates: start: 19860101, end: 20001001
  4. ESTRACE [Suspect]
     Dosage: ORAL
     Route: 048
     Dates: start: 19860101, end: 20001001

REACTIONS (1)
  - BREAST CANCER [None]
